FAERS Safety Report 5644282-7 (Version None)
Quarter: 2008Q1

REPORT INFORMATION
  Report Type: 
  Country: None (occurrence: None)
  Receive Date: 20080229
  Receipt Date: 20080229
  Transmission Date: 20080703
  Serious: Yes (Death)
  Sender: FDA-Public Use
  Company Number: None

PATIENT
  Age: 76 Year
  Sex: Male

DRUGS (1)
  1. HEPARIN [Suspect]
     Indication: CARDIAC OPERATION
     Dates: start: 20071020, end: 20071020

REACTIONS (2)
  - HYPERSENSITIVITY [None]
  - UNRESPONSIVE TO STIMULI [None]
